FAERS Safety Report 20654169 (Version 1)
Quarter: 2022Q1

REPORT INFORMATION
  Report Type: Spontaneous
  Country: US (occurrence: US)
  Receive Date: 20220330
  Receipt Date: 20220330
  Transmission Date: 20220423
  Serious: Yes (Other)
  Sender: FDA-Public Use
  Company Number: US-PFIZER INC-202200442431

PATIENT
  Age: 25 Year
  Sex: Female

DRUGS (1)
  1. VINCRISTINE SULFATE [Suspect]
     Active Substance: VINCRISTINE SULFATE
     Indication: Acute lymphocytic leukaemia
     Dosage: UNK

REACTIONS (4)
  - Pseudomonal bacteraemia [Unknown]
  - Klebsiella bacteraemia [Unknown]
  - Ileus [Unknown]
  - Colitis [Unknown]
